FAERS Safety Report 21324581 (Version 1)
Quarter: 2022Q3

REPORT INFORMATION
  Report Type: Spontaneous
  Country: US (occurrence: None)
  Receive Date: 20220912
  Receipt Date: 20220912
  Transmission Date: 20221026
  Serious: No
  Sender: FDA-Public Use
  Company Number: None

PATIENT
  Age: 26 Year
  Sex: Female

DRUGS (1)
  1. ICATIBANT ACETATE [Suspect]
     Active Substance: ICATIBANT ACETATE
     Indication: Complement factor abnormal
     Dosage: 30 MG AS NEEDED SC
     Route: 058
     Dates: start: 202205

REACTIONS (2)
  - Swelling [None]
  - Pharyngeal swelling [None]

NARRATIVE: CASE EVENT DATE: 20220902
